FAERS Safety Report 4705090-4 (Version None)
Quarter: 2005Q2

REPORT INFORMATION
  Report Type: 
  Country: None (occurrence: None)
  Receive Date: 20050630
  Receipt Date: 20050630
  Transmission Date: 20051028
  Serious: Yes (Other)
  Sender: FDA-Public Use
  Company Number: None

PATIENT

DRUGS (1)
  1. LEVOTHYROXINE  0.025 MG [Suspect]
     Indication: HYPOTHYROIDISM
     Dosage: QD

REACTIONS (1)
  - COUGH [None]
